FAERS Safety Report 16668949 (Version 3)
Quarter: 2019Q4

REPORT INFORMATION
  Report Type: Spontaneous
  Country: JP (occurrence: JP)
  Receive Date: 20190805
  Receipt Date: 20191030
  Transmission Date: 20200122
  Serious: Yes (Other)
  Sender: FDA-Public Use
  Company Number: JP-ELI_LILLY_AND_COMPANY-JP201908000547

PATIENT
  Age: 65 Year
  Sex: Male

DRUGS (6)
  1. ERBITUX [Suspect]
     Active Substance: CETUXIMAB
     Indication: COLON CANCER
     Dosage: 600 MG, UNKNOWN
     Route: 042
     Dates: start: 20180224
  2. IRINOTECAN [Suspect]
     Active Substance: IRINOTECAN
     Indication: COLON CANCER
     Dosage: UNK UNK, UNKNOWN
     Route: 065
  3. ASPIRINE [Concomitant]
     Active Substance: ASPIRIN
     Indication: PRODUCT USED FOR UNKNOWN INDICATION
     Dosage: UNK, UNKNOWN
     Route: 065
  4. TS-1 [Suspect]
     Active Substance: GIMERACIL\OTERACIL\TEGAFUR
     Indication: COLON CANCER
     Dosage: UNK, UNKNOWN
     Route: 065
  5. ERBITUX [Suspect]
     Active Substance: CETUXIMAB
     Dosage: 350 MG, WEEKLY (1/W)
     Route: 042
     Dates: end: 20180324
  6. ERBITUX [Suspect]
     Active Substance: CETUXIMAB
     Dosage: 400 MG, WEEKLY (1/W)
     Route: 042
     Dates: start: 201803

REACTIONS (2)
  - Shock haemorrhagic [Recovered/Resolved]
  - Peptic ulcer [Unknown]

NARRATIVE: CASE EVENT DATE: 20180330
